FAERS Safety Report 11651820 (Version 1)
Quarter: 2015Q4

REPORT INFORMATION
  Report Type: Spontaneous
  Country: US (occurrence: None)
  Receive Date: 20151021
  Receipt Date: 20151021
  Transmission Date: 20160304
  Serious: Yes (Other)
  Sender: FDA-Public Use
  Company Number: None

PATIENT
  Age: 86 Year
  Sex: Female
  Weight: 45.36 kg

DRUGS (6)
  1. CALCIUM CITRATE WITH D3 [Concomitant]
  2. PLAVIX [Concomitant]
     Active Substance: CLOPIDOGREL BISULFATE
  3. COREG [Concomitant]
     Active Substance: CARVEDILOL
  4. NIACIN. [Concomitant]
     Active Substance: NIACIN
  5. FOSFOMYCIN [Suspect]
     Active Substance: FOSFOMYCIN
     Indication: CYSTITIS
     Dosage: A ONE TIME DOSE
     Dates: start: 20150818, end: 20150818
  6. VIT CAP D COMPLETE WOMEN^S HEALTH [Concomitant]

REACTIONS (5)
  - Restlessness [None]
  - Rectal haemorrhage [None]
  - Urine odour abnormal [None]
  - Diarrhoea [None]
  - Insomnia [None]

NARRATIVE: CASE EVENT DATE: 20150818
